FAERS Safety Report 4492101-7 (Version None)
Quarter: 2004Q3

REPORT INFORMATION
  Report Type: 
  Country: None (occurrence: None)
  Receive Date: 20040924
  Receipt Date: 20040816
  Transmission Date: 20050211
  Serious: Yes (Life-Threatening)
  Sender: FDA-Public Use
  Company Number: 04P-163-0270771-00

PATIENT
  Age: 29 Year
  Sex: Female

DRUGS (10)
  1. KALETRA [Suspect]
     Indication: HIV INFECTION
     Dosage: 1 DOSAGE FORMS, 2 IN 1 D, PER ORAL
     Route: 048
     Dates: start: 20040512, end: 20040611
  2. EFAVIRENZ [Suspect]
     Indication: HIV INFECTION
     Dosage: 600 MG, 1 IN 1 D, PER ORAL
     Route: 048
     Dates: start: 20040512, end: 20040611
  3. LORAZEPAM [Concomitant]
  4. CIPROFLOXACIN HYDROCHLORIDE [Concomitant]
  5. IBUPROFEN [Concomitant]
  6. LANSOPRAZOLE [Concomitant]
  7. PAROXETINE HYDROCHLORIDE [Concomitant]
  8. SINGULAIR [Concomitant]
  9. SALBUTAMOL [Concomitant]
  10. IBUPROFEN [Concomitant]

REACTIONS (3)
  - ABDOMINAL PAIN [None]
  - ALANINE AMINOTRANSFERASE INCREASED [None]
  - ASPARTATE AMINOTRANSFERASE INCREASED [None]
